FAERS Safety Report 5484462-7 (Version None)
Quarter: 2007Q4

REPORT INFORMATION
  Report Type: 
  Country: None (occurrence: None)
  Receive Date: 20071009
  Receipt Date: 20070927
  Transmission Date: 20080405
  Serious: Yes (Other)
  Sender: FDA-Public Use
  Company Number: CHNY2007GB03284

PATIENT
  Sex: Female

DRUGS (3)
  1. NICOTINE [Suspect]
     Indication: SMOKING CESSATION THERAPY
     Dosage: 21 MG, TRANSDERMAL
     Route: 062
  2. KEPPRA [Concomitant]
  3. PHENOBARBITAL TAB [Concomitant]

REACTIONS (2)
  - EPILEPSY [None]
  - MUSCLE TWITCHING [None]
